FAERS Safety Report 8136856-9 (Version None)
Quarter: 2012Q1

REPORT INFORMATION
  Report Type: 
  Country: None (occurrence: None)
  Receive Date: 20120214
  Receipt Date: 20120206
  Transmission Date: 20120608
  Serious: Yes (Other)
  Sender: FDA-Public Use
  Company Number: BR-ASTRAZENECA-2010SE31066

PATIENT
  Age: 61 Year
  Sex: Male

DRUGS (1)
  1. CRESTOR [Suspect]
     Indication: HYPERCHOLESTEROLAEMIA
     Route: 048
     Dates: start: 20080101

REACTIONS (5)
  - ROAD TRAFFIC ACCIDENT [None]
  - LOCALISED INFECTION [None]
  - OSTEOMYELITIS [None]
  - BONE DEVELOPMENT ABNORMAL [None]
  - LOWER LIMB FRACTURE [None]
